FAERS Safety Report 5020129-7 (Version None)
Quarter: 2006Q2

REPORT INFORMATION
  Report Type: 
  Country: None (occurrence: None)
  Receive Date: 20060602
  Receipt Date: 20060406
  Transmission Date: 20061013
  Serious: Yes (Hospitalization)
  Sender: FDA-Public Use
  Company Number: MEDI-0004621

PATIENT
  Age: 3 Month
  Sex: 0
  Weight: 3.1 kg

DRUGS (4)
  1. SYNAGIS [Suspect]
     Indication: ANTIVIRAL PROPHYLAXIS
     Dosage: 46 MG 1 IN 30 D INTRAMUSCULAR;32MG;39,MG;64MG;67MG
     Route: 030
     Dates: start: 20051021, end: 20051213
  2. SYNAGIS [Suspect]
     Indication: ANTIVIRAL PROPHYLAXIS
     Dosage: 46 MG 1 IN 30 D INTRAMUSCULAR;32MG;39,MG;64MG;67MG
     Route: 030
     Dates: start: 20051117
  3. SYNAGIS [Suspect]
     Indication: ANTIVIRAL PROPHYLAXIS
     Dosage: 46 MG 1 IN 30 D INTRAMUSCULAR;32MG;39,MG;64MG;67MG
     Route: 030
     Dates: start: 20060111
  4. SYNAGIS [Suspect]
     Indication: ANTIVIRAL PROPHYLAXIS
     Dosage: 46 MG 1 IN 30 D INTRAMUSCULAR;32MG;39,MG;64MG;67MG
     Route: 030
     Dates: start: 20060208

REACTIONS (1)
  - BRONCHIOLITIS [None]
